FAERS Safety Report 9472240 (Version 2)
Quarter: 2013Q3

REPORT INFORMATION
  Report Type: Spontaneous
  Country: US (occurrence: US)
  Receive Date: 20130823
  Receipt Date: 20130909
  Transmission Date: 20140515
  Serious: Yes (Other)
  Sender: FDA-Public Use
  Company Number: US-GENZYME-CERZ-1003135

PATIENT
  Age: 59 Year
  Sex: Female
  Weight: 136.7 kg

DRUGS (5)
  1. CEREZYME [Suspect]
     Indication: GAUCHER^S DISEASE
     Dosage: 40 U/KG, Q2W
     Route: 042
     Dates: start: 19930830, end: 20100515
  2. VELAGLUCERASE ALFA (VPIV) [Concomitant]
     Indication: GAUCHER^S DISEASE
     Dosage: UNK
     Route: 065
     Dates: start: 20100609
  3. ATENOLOL [Concomitant]
     Indication: PRODUCT USED FOR UNKNOWN INDICATION
     Dosage: UNK
     Route: 065
  4. TOPAMAX [Concomitant]
     Indication: PRODUCT USED FOR UNKNOWN INDICATION
     Dosage: UNK
     Route: 065
  5. SERTRALINE [Concomitant]
     Indication: PRODUCT USED FOR UNKNOWN INDICATION
     Dosage: UNK
     Route: 065

REACTIONS (1)
  - Breast cancer [Not Recovered/Not Resolved]
